FAERS Safety Report 11248480 (Version 1)
Quarter: 2015Q3

REPORT INFORMATION
  Report Type: Spontaneous
  Country: US (occurrence: US)
  Receive Date: 20150708
  Receipt Date: 20150708
  Transmission Date: 20151125
  Serious: Yes (Other)
  Sender: FDA-Public Use
  Company Number: US-PFIZER INC-2015223716

PATIENT
  Age: 77 Year
  Sex: Female
  Weight: 67 kg

DRUGS (5)
  1. TOPROL XL [Concomitant]
     Active Substance: METOPROLOL SUCCINATE
     Indication: HYPERTENSION
     Dosage: 12.5 MG, 2X/DAY
  2. MAGNESIUM OXIDE. [Concomitant]
     Active Substance: MAGNESIUM OXIDE
     Dosage: 400 MG, 2X/DAY
  3. COUMADIN [Concomitant]
     Active Substance: WARFARIN SODIUM
     Dosage: UNK
  4. SPIRONOLACTONE. [Concomitant]
     Active Substance: SPIRONOLACTONE
     Indication: FLUID RETENTION
     Dosage: 50 MG, DAILY (25 MG TWO TABLETS A DAY)
  5. TIKOSYN [Suspect]
     Active Substance: DOFETILIDE
     Indication: HEART RATE IRREGULAR
     Dosage: 500 MG, 2X/DAY

REACTIONS (8)
  - Dizziness [Unknown]
  - Stress [Unknown]
  - Eating disorder [Unknown]
  - Nausea [Unknown]
  - Abscess [Unknown]
  - Headache [Unknown]
  - Wrist fracture [Unknown]
  - Blood glucose decreased [Unknown]
